FAERS Safety Report 5367139-8 (Version None)
Quarter: 2007Q2

REPORT INFORMATION
  Report Type: 
  Country: None (occurrence: None)
  Receive Date: 20070622
  Receipt Date: 20061106
  Transmission Date: 20071010
  Serious: No
  Sender: FDA-Public Use
  Company Number: US-BRISTOL-MYERS SQUIBB COMPANY-13567649

PATIENT
  Sex: Female

DRUGS (4)
  1. SINEMET [Suspect]
     Indication: PARKINSON'S DISEASE
     Dosage: DOSAGE INCREASED TO 50/200
     Dates: start: 20010101
  2. SINEMET CR [Suspect]
     Indication: PARKINSON'S DISEASE
  3. REQUIP [Concomitant]
     Dates: start: 20010101
  4. AMANTADINE HCL [Concomitant]

REACTIONS (2)
  - MALAISE [None]
  - PARKINSON'S DISEASE [None]
